FAERS Safety Report 7442352-4 (Version None)
Quarter: 2011Q2

REPORT INFORMATION
  Report Type: 
  Country: None (occurrence: None)
  Receive Date: 20110425
  Receipt Date: 20110425
  Transmission Date: 20111010
  Serious: Yes (Hospitalization)
  Sender: FDA-Public Use
  Company Number: None

PATIENT
  Age: 45 Year
  Sex: Female
  Weight: 130.6 kg

DRUGS (1)
  1. CEFTRIAXONE [Suspect]
     Indication: EVIDENCE BASED TREATMENT
     Dosage: 1 GRAM Q24H IV DRIP  1 DOSE
     Route: 041
     Dates: start: 20110420, end: 20110420

REACTIONS (3)
  - WHEEZING [None]
  - RASH [None]
  - DYSPNOEA [None]
